FAERS Safety Report 21642835 (Version 1)
Quarter: 2022Q4

REPORT INFORMATION
  Report Type: Spontaneous
  Country: JP (occurrence: JP)
  Receive Date: 20221125
  Receipt Date: 20221125
  Transmission Date: 20230112
  Serious: Yes (Other)
  Sender: FDA-Public Use
  Company Number: JP-TEVA-2021-JP-1992014

PATIENT

DRUGS (5)
  1. TRISENOX [Suspect]
     Active Substance: ARSENIC TRIOXIDE
     Indication: Product used for unknown indication
     Dosage: 10 MG/M2/24 HOURS
     Route: 042
     Dates: start: 2021
  2. VESANOID [Concomitant]
     Active Substance: TRETINOIN
     Indication: Product used for unknown indication
     Route: 065
  3. VESANOID [Concomitant]
     Active Substance: TRETINOIN
     Route: 065
  4. OMEPRAZOLE [Concomitant]
     Active Substance: OMEPRAZOLE
     Indication: Epigastric discomfort
  5. GASLON [Concomitant]
     Active Substance: IRSOGLADINE MALEATE
     Indication: Epigastric discomfort

REACTIONS (2)
  - Electrocardiogram QT prolonged [Unknown]
  - Epigastric discomfort [Unknown]

NARRATIVE: CASE EVENT DATE: 20210101
